FAERS Safety Report 8512225-4 (Version None)
Quarter: 2012Q3

REPORT INFORMATION
  Report Type: 
  Country: None (occurrence: None)
  Receive Date: 20120716
  Receipt Date: 20120703
  Transmission Date: 20120928
  Serious: Yes (Hospitalization)
  Sender: FDA-Public Use
  Company Number: JP-ROCHE-1031162

PATIENT
  Sex: Female
  Weight: 40 kg

DRUGS (4)
  1. AVASTIN [Suspect]
     Indication: RECTAL CANCER RECURRENT
     Dosage: TREATMENT LINE: 1 PRIMARY COMPLETED TREATMENT CYCLE NUMBER: 1
     Route: 041
     Dates: start: 20111202, end: 20111202
  2. XELODA [Suspect]
     Indication: RECTAL CANCER RECURRENT
     Route: 048
     Dates: start: 20111202, end: 20111206
  3. CANDESARTAN CILEXETIL [Concomitant]
     Indication: HYPERTENSION
     Route: 048
     Dates: start: 20111202, end: 20111206
  4. AMLODIPINE [Concomitant]
     Dosage: DOSAGE IS UNCERTAIN.
     Route: 048

REACTIONS (2)
  - CONSTIPATION [None]
  - SMALL INTESTINAL PERFORATION [None]
